FAERS Safety Report 6701683-3 (Version None)
Quarter: 2010Q2

REPORT INFORMATION
  Report Type: 
  Country: None (occurrence: None)
  Receive Date: 20100429
  Receipt Date: 20100416
  Transmission Date: 20101027
  Serious: Yes (Hospitalization)
  Sender: FDA-Public Use
  Company Number: PHHY2010GB07930

PATIENT
  Sex: Male

DRUGS (2)
  1. CLOZARIL [Suspect]
     Indication: SCHIZOPHRENIA
     Dosage: UNK
     Dates: start: 19951103
  2. CLOZARIL [Suspect]
     Dosage: 100 MG MORNING AND 200 MG NIGHT
     Dates: start: 19970101

REACTIONS (6)
  - ALCOHOL ABUSE [None]
  - ANKLE OPERATION [None]
  - FALL [None]
  - LOWER LIMB FRACTURE [None]
  - MULTIPLE FRACTURES [None]
  - UPPER LIMB FRACTURE [None]
